FAERS Safety Report 16750015 (Version 2)
Quarter: 2019Q3

REPORT INFORMATION
  Report Type: Spontaneous
  Country: CA (occurrence: CA)
  Receive Date: 20190828
  Receipt Date: 20190906
  Transmission Date: 20191005
  Serious: Yes (Other)
  Sender: FDA-Public Use
  Company Number: CA-AMGEN-CANSP2019134837

PATIENT
  Age: 56 Year

DRUGS (4)
  1. DANAZOL. [Concomitant]
     Active Substance: DANAZOL
  2. NPLATE [Suspect]
     Active Substance: ROMIPLOSTIM
     Indication: APLASTIC ANAEMIA
  3. NPLATE [Suspect]
     Active Substance: ROMIPLOSTIM
     Indication: IMMUNE THROMBOCYTOPENIC PURPURA
     Dosage: UNK
     Route: 065
     Dates: start: 201902
  4. PREDNISONE. [Concomitant]
     Active Substance: PREDNISONE

REACTIONS (2)
  - Thrombocytopenia [Unknown]
  - Thrombocytosis [Unknown]
